FAERS Safety Report 8267540 (Version 2)
Quarter: 2013Q2

REPORT INFORMATION
  Report Type: Spontaneous
  Country: US (occurrence: None)
  Receive Date: 20111122
  Receipt Date: 20120426
  Transmission Date: 20140414
  Serious: Yes (Other)
  Sender: FDA-Public Use
  Company Number: PHHY2011US56227

PATIENT
  Age: 43 Year
  Sex: Female
  Weight: 72.6 kg

DRUGS (1)
  1. GILENYA [Suspect]
     Indication: MULTIPLE SCLEROSIS
     Route: 048
     Dates: start: 20110614

REACTIONS (2)
  - MULTIPLE SCLEROSIS RELAPSE [None]
  - VISION BLURRED [None]
